FAERS Safety Report 18080996 (Version 1)
Quarter: 2020Q3

REPORT INFORMATION
  Report Type: Report from Study
  Country: US (occurrence: US)
  Receive Date: 20200728
  Receipt Date: 20200728
  Transmission Date: 20201103
  Serious: Yes (Hospitalization)
  Sender: FDA-Public Use
  Company Number: US-EISAI MEDICAL RESEARCH-EC-2020-073966

PATIENT
  Age: 69 Year
  Sex: Male

DRUGS (3)
  1. LENVIMA [Suspect]
     Active Substance: LENVATINIB
     Route: 048
     Dates: start: 20200507, end: 20200702
  2. LENVIMA [Suspect]
     Active Substance: LENVATINIB
     Route: 048
     Dates: start: 20200504, end: 20200506
  3. LENVIMA [Suspect]
     Active Substance: LENVATINIB
     Indication: HEPATOCELLULAR CARCINOMA
     Route: 048
     Dates: start: 20200414, end: 20200418

REACTIONS (13)
  - Decreased appetite [Recovering/Resolving]
  - Dyspnoea [Recovered/Resolved]
  - Hepatic enzyme increased [Not Recovered/Not Resolved]
  - Vomiting [Not Recovered/Not Resolved]
  - Hypophagia [Not Recovered/Not Resolved]
  - Abdominal pain [Recovering/Resolving]
  - Fatigue [Not Recovered/Not Resolved]
  - Weight decreased [Not Recovered/Not Resolved]
  - Swelling [Not Recovered/Not Resolved]
  - Pyrexia [Not Recovered/Not Resolved]
  - Dehydration [Not Recovered/Not Resolved]
  - Pain [Not Recovered/Not Resolved]
  - Pruritus [Not Recovered/Not Resolved]

NARRATIVE: CASE EVENT DATE: 2020
